FAERS Safety Report 9282464 (Version 1)
Quarter: 2013Q2

REPORT INFORMATION
  Report Type: Spontaneous
  Country: US (occurrence: US)
  Receive Date: 20130510
  Receipt Date: 20130510
  Transmission Date: 20140414
  Serious: No
  Sender: FDA-Public Use
  Company Number: US-BAYER-2013-058303

PATIENT
  Age: 94 Year
  Sex: Female

DRUGS (1)
  1. CIPRO [Suspect]
     Dosage: 500 MG, UNK

REACTIONS (1)
  - Wrong technique in drug usage process [None]
